FAERS Safety Report 8522632-1 (Version None)
Quarter: 2012Q3

REPORT INFORMATION
  Report Type: 
  Country: None (occurrence: None)
  Receive Date: 20120719
  Receipt Date: 20120713
  Transmission Date: 20120928
  Serious: Yes (Hospitalization)
  Sender: FDA-Public Use
  Company Number: IT-JNJFOC-20110104827

PATIENT
  Sex: Female
  Weight: 71 kg

DRUGS (14)
  1. REMICADE [Suspect]
     Route: 042
     Dates: start: 20090420
  2. REMICADE [Suspect]
     Route: 042
     Dates: start: 20091103
  3. REMICADE [Suspect]
     Route: 042
     Dates: start: 20090613
  4. LANSOPRAZOLE [Concomitant]
     Indication: GASTROINTESTINAL DISORDER THERAPY
     Route: 048
  5. REMICADE [Suspect]
     Route: 042
     Dates: start: 20090406
  6. REMICADE [Suspect]
     Route: 042
     Dates: start: 20100304
  7. REMICADE [Suspect]
     Route: 042
     Dates: start: 20101209
  8. REMICADE [Suspect]
     Route: 042
     Dates: start: 20100107
  9. MESALAMINE [Concomitant]
     Route: 054
  10. REMICADE [Suspect]
     Route: 042
     Dates: start: 20090909
  11. MESALAMINE [Concomitant]
     Indication: COLITIS ULCERATIVE
     Route: 048
  12. REMICADE [Suspect]
     Indication: COLITIS ULCERATIVE
     Route: 042
     Dates: start: 20090518
  13. REMICADE [Suspect]
     Route: 042
     Dates: start: 20100505
  14. REMICADE [Suspect]
     Route: 042
     Dates: start: 20101015

REACTIONS (1)
  - TERATOMA [None]
